FAERS Safety Report 13870139 (Version 3)
Quarter: 2018Q3

REPORT INFORMATION
  Report Type: Spontaneous
  Country: CZ (occurrence: CZ)
  Receive Date: 20170815
  Receipt Date: 20180710
  Transmission Date: 20181010
  Serious: Yes (Hospitalization, Disabling, Other)
  Sender: FDA-Public Use
  Company Number: CZ-LUNDBECK-DKLU2035652

PATIENT
  Sex: Female

DRUGS (20)
  1. AMITRIPTYLINE?TABLETS [Suspect]
     Active Substance: AMITRIPTYLINE
     Route: 048
  2. VERAPAMIL HYDROCHLORIDE. [Suspect]
     Active Substance: VERAPAMIL HYDROCHLORIDE
     Indication: PRODUCT USED FOR UNKNOWN INDICATION
     Route: 065
  3. TRITTICO [Concomitant]
     Active Substance: TRAZODONE HYDROCHLORIDE
     Indication: PRODUCT USED FOR UNKNOWN INDICATION
     Route: 065
     Dates: start: 201405, end: 201405
  4. AMITRIPTYLINE?TABLETS [Suspect]
     Active Substance: AMITRIPTYLINE
     Route: 048
     Dates: end: 20140309
  5. PROSULPIN [Suspect]
     Active Substance: SULPIRIDE
     Indication: SOMATIC SYMPTOM DISORDER
     Route: 065
     Dates: start: 20131228, end: 20140126
  6. DALCINE [Suspect]
     Active Substance: CLINDAMYCIN HYDROCHLORIDE
     Indication: DENTAL CARE
     Route: 065
     Dates: start: 2012, end: 2012
  7. PANGROL [Suspect]
     Active Substance: PANCRELIPASE
     Indication: ABDOMINAL DISCOMFORT
     Route: 065
     Dates: start: 2013
  8. VERAL [Suspect]
     Active Substance: DICLOFENAC SODIUM
     Indication: PRODUCT USED FOR UNKNOWN INDICATION
     Route: 065
  9. PANCREATIN [Suspect]
     Active Substance: PANCRELIPASE
     Indication: ABDOMINAL DISCOMFORT
     Route: 065
     Dates: start: 2013
  10. LETROX [Concomitant]
     Active Substance: LEVOTHYROXINE SODIUM
     Indication: THYROID DISORDER
     Route: 065
     Dates: start: 2007
  11. AMITRIPTYLINE?TABLETS [Suspect]
     Active Substance: AMITRIPTYLINE
     Indication: PRODUCT USED FOR UNKNOWN INDICATION
     Dosage: ORIGINALLY 1 X A DAY, THEN LOWERED TO 0.5 DOSAGE FORMS (DF) A DAY, THEN 1/4 DF A DAY, THEN DISCONTIN
     Route: 048
     Dates: start: 20140117
  12. PANCREOLAN FORTE [Suspect]
     Active Substance: DIASTASE\LIPASE\PROTEASE
     Indication: PRODUCT USED FOR UNKNOWN INDICATION
     Route: 065
  13. HELICID [Suspect]
     Active Substance: OMEPRAZOLE
     Indication: GASTROINTESTINAL PAIN
     Route: 065
     Dates: start: 201311
  14. PANGROL [Suspect]
     Active Substance: PANCRELIPASE
     Indication: ABDOMINAL DISCOMFORT
  15. VALDOXAN [Suspect]
     Active Substance: AGOMELATINE
     Indication: IRRITABLE BOWEL SYNDROME
     Route: 065
     Dates: start: 20131216, end: 20131227
  16. FRISIUM [Suspect]
     Active Substance: CLOBAZAM
     Indication: PRODUCT USED FOR UNKNOWN INDICATION
     Dosage: OCCASIONALLY WHEN PROBLEMS ARE PRESENT
     Route: 048
     Dates: start: 20140117
  17. EUTHYROX [Suspect]
     Active Substance: LEVOTHYROXINE SODIUM
     Indication: THYROID DISORDER
     Route: 065
     Dates: start: 200204, end: 2007
  18. PROSULPIN [Suspect]
     Active Substance: SULPIRIDE
     Indication: SOMATIC SYMPTOM DISORDER
  19. PANZYNORM [Suspect]
     Active Substance: PANCRELIPASE
     Indication: PRODUCT USED FOR UNKNOWN INDICATION
     Route: 065
  20. MIABENE [Concomitant]
     Active Substance: MIANSERIN HYDROCHLORIDE
     Indication: PRODUCT USED FOR UNKNOWN INDICATION
     Dosage: WITH 2?3 WEEKS OVERLAP WITH EUTHYROX, 3 MONTHS OF USE WITHOUT ADVERSE REACTION
     Route: 065

REACTIONS (10)
  - Feeding disorder [Unknown]
  - Gastrointestinal disorder [Unknown]
  - Abdominal pain upper [Unknown]
  - Abdominal pain upper [None]
  - Flatulence [Unknown]
  - Abdominal pain lower [Unknown]
  - Lactose intolerance [Unknown]
  - Abnormal loss of weight [Unknown]
  - Abnormal dreams [Recovered/Resolved]
  - Medication error [Unknown]

NARRATIVE: CASE EVENT DATE: 2001
